FAERS Safety Report 8283563-8 (Version None)
Quarter: 2012Q2

REPORT INFORMATION
  Report Type: 
  Country: None (occurrence: None)
  Receive Date: 20120413
  Receipt Date: 20120404
  Transmission Date: 20120825
  Serious: Yes (Hospitalization)
  Sender: FDA-Public Use
  Company Number: FR-BRISTOL-MYERS SQUIBB COMPANY-16504193

PATIENT
  Sex: Female

DRUGS (1)
  1. REYATAZ [Suspect]

REACTIONS (1)
  - GASTROINTESTINAL DISORDER [None]
